FAERS Safety Report 5807081-9 (Version None)
Quarter: 2008Q3

REPORT INFORMATION
  Report Type: 
  Country: None (occurrence: None)
  Receive Date: 20080711
  Receipt Date: 20010207
  Transmission Date: 20090109
  Serious: Yes (Death)
  Sender: FDA-Public Use
  Company Number: US-BAXTER-2007BH009706

PATIENT
  Age: 54 Year
  Sex: Female

DRUGS (5)
  1. HEPARIN SODIUM 5,000 UNITS IN DEXTROSE 5% [Suspect]
     Indication: ACUTE MYOCARDIAL INFARCTION
     Route: 040
     Dates: start: 20001113, end: 20001113
  2. HEPARIN SODIUM 5,000 UNITS IN DEXTROSE 5% [Suspect]
     Route: 042
     Dates: start: 20001113, end: 20001114
  3. ALTEPLASE [Suspect]
     Indication: ACUTE MYOCARDIAL INFARCTION
     Route: 042
     Dates: start: 20001113
  4. ASPIRIN [Suspect]
     Indication: ACUTE MYOCARDIAL INFARCTION
     Route: 048
     Dates: start: 20001113, end: 20001113
  5. ASPIRIN [Concomitant]
     Route: 048

REACTIONS (2)
  - BRAIN NEOPLASM [None]
  - SUBDURAL HAEMATOMA [None]
